FAERS Safety Report 9514984 (Version 3)
Quarter: 2013Q3

REPORT INFORMATION
  Report Type: Spontaneous
  Country: US (occurrence: US)
  Receive Date: 20130911
  Receipt Date: 20130911
  Transmission Date: 20140515
  Serious: No
  Sender: FDA-Public Use
  Company Number: US-JNJFOC-20090908284

PATIENT
  Age: 45 Year
  Sex: Female
  Weight: 77.11 kg

DRUGS (6)
  1. DURAGESIC [Suspect]
     Indication: INTERVERTEBRAL DISC DEGENERATION
     Route: 062
  2. DURAGESIC [Suspect]
     Indication: INTERVERTEBRAL DISC PROTRUSION
     Route: 062
  3. TYLENOL 4 [Concomitant]
     Indication: PAIN
     Route: 048
  4. PROTONIX [Concomitant]
     Indication: GASTRIC DISORDER
     Route: 048
     Dates: start: 2004
  5. PHENERGAN [Concomitant]
     Indication: VOMITING
     Route: 048
  6. PHENERGAN [Concomitant]
     Indication: NAUSEA
     Route: 054

REACTIONS (4)
  - Application site ulcer [Not Recovered/Not Resolved]
  - Product quality issue [Unknown]
  - Application site scab [Not Recovered/Not Resolved]
  - Drug dose omission [Unknown]
